FAERS Safety Report 5941157-0 (Version None)
Quarter: 2008Q4

REPORT INFORMATION
  Report Type: 
  Country: None (occurrence: None)
  Receive Date: 20081104
  Receipt Date: 20081024
  Transmission Date: 20090506
  Serious: Yes (Hospitalization, Other)
  Sender: FDA-Public Use
  Company Number: US-PFIZER INC-2008089795

PATIENT
  Sex: Female
  Weight: 58.1 kg

DRUGS (3)
  1. CHANTIX [Suspect]
     Indication: SMOKING CESSATION THERAPY
  2. ATIVAN [Concomitant]
     Indication: RESPIRATORY DISORDER
  3. ANTIDEPRESSANTS [Concomitant]
     Indication: DEPRESSION

REACTIONS (6)
  - ABASIA [None]
  - FLUID RETENTION [None]
  - GALLBLADDER DISORDER [None]
  - LIVER DISORDER [None]
  - PARALYSIS [None]
  - UTERINE POLYP [None]
